FAERS Safety Report 4806611-3 (Version None)
Quarter: 2005Q4

REPORT INFORMATION
  Report Type: 
  Country: None (occurrence: None)
  Receive Date: 20051021
  Receipt Date: 20051005
  Transmission Date: 20060501
  Serious: Yes (Death)
  Sender: FDA-Public Use
  Company Number: CA-JNJFOC-20051001654

PATIENT
  Sex: Male
  Weight: 90 kg

DRUGS (7)
  1. ITRACONAZOLE [Suspect]
     Route: 042
     Dates: start: 20050916, end: 20050927
  2. ITRACONAZOLE [Suspect]
     Indication: BLASTOMYCOSIS
     Dosage: TIMES 4 DOSES
     Route: 042
     Dates: start: 20050916, end: 20050927
  3. ITRACONAZOLE [Suspect]
     Dates: start: 20050928, end: 20051003
  4. AMIODARONE HCL [Concomitant]
  5. METOPROLOL [Concomitant]
  6. THYROXINE [Concomitant]
  7. WARFARIN [Concomitant]

REACTIONS (6)
  - CIRCULATORY COLLAPSE [None]
  - LIVER FUNCTION TEST ABNORMAL [None]
  - METABOLIC ACIDOSIS [None]
  - MULTI-ORGAN FAILURE [None]
  - RESPIRATORY FAILURE [None]
  - STAPHYLOCOCCAL SEPSIS [None]
